FAERS Safety Report 12191745 (Version 1)
Quarter: 2016Q1

REPORT INFORMATION
  Report Type: Spontaneous
  Country: IT (occurrence: IT)
  Receive Date: 20160318
  Receipt Date: 20160318
  Transmission Date: 20160526
  Serious: Yes (Life-Threatening)
  Sender: FDA-Public Use
  Company Number: IT-009507513-1603ITA005709

PATIENT
  Age: 69 Year
  Sex: Male
  Weight: 106 kg

DRUGS (1)
  1. JANUMET [Suspect]
     Active Substance: METFORMIN HYDROCHLORIDE\SITAGLIPTIN PHOSPHATE
     Indication: TYPE 2 DIABETES MELLITUS
     Dosage: TOTAL DAILY DOSE: 2 DOSE (UNIT)
     Route: 048
     Dates: start: 20140224, end: 20151115

REACTIONS (1)
  - Adenocarcinoma pancreas [Unknown]

NARRATIVE: CASE EVENT DATE: 20151115
